FAERS Safety Report 23444120 (Version 1)
Quarter: 2024Q1

REPORT INFORMATION
  Report Type: Spontaneous
  Country: US (occurrence: US)
  Receive Date: 20240125
  Receipt Date: 20240125
  Transmission Date: 20240410
  Serious: Yes (Other)
  Sender: FDA-Public Use
  Company Number: US-002147023-NVSC2024US017246

PATIENT

DRUGS (2)
  1. ASCIMINIB [Suspect]
     Active Substance: ASCIMINIB
     Indication: Chronic myeloid leukaemia
     Dosage: 40 MG, BID
     Route: 048
  2. ASCIMINIB [Suspect]
     Active Substance: ASCIMINIB
     Dosage: 20 MG
     Route: 065

REACTIONS (1)
  - Pericardial effusion [Recovered/Resolved]
